FAERS Safety Report 6052975-5 (Version None)
Quarter: 2009Q1

REPORT INFORMATION
  Report Type: 
  Country: None (occurrence: None)
  Receive Date: 20090127
  Receipt Date: 20081024
  Transmission Date: 20090719
  Serious: No
  Sender: FDA-Public Use
  Company Number: US-ABBOTT-08P-163-0484140-00

PATIENT
  Sex: Male
  Weight: 68.1 kg

DRUGS (7)
  1. LUPRON DEPOT [Suspect]
     Indication: PROSTATE CANCER
     Route: 030
     Dates: start: 20030101
  2. WARFARIN SODIUM [Concomitant]
     Indication: ATRIAL FIBRILLATION
     Route: 048
  3. ULTRACET [Concomitant]
     Indication: PAIN
     Route: 048
  4. MAXZIDE [Concomitant]
     Indication: DIURETIC THERAPY
     Route: 048
  5. ROSUVASTATIN CALCIUM [Concomitant]
     Indication: BLOOD CHOLESTEROL INCREASED
     Route: 048
  6. GUAIFENESIN [Concomitant]
     Indication: COUGH
     Route: 048
  7. SPIRIVA [Concomitant]
     Indication: COUGH

REACTIONS (1)
  - INJECTION SITE PAIN [None]
